FAERS Safety Report 23748867 (Version 1)
Quarter: 2024Q2

REPORT INFORMATION
  Report Type: Report from Study
  Country: CA (occurrence: CA)
  Receive Date: 20240416
  Receipt Date: 20240416
  Transmission Date: 20240715
  Serious: Yes (Hospitalization)
  Sender: FDA-Public Use
  Company Number: CA-Eisai-EC-2024-162105

PATIENT
  Age: 5 Year
  Sex: Female

DRUGS (5)
  1. BANZEL [Suspect]
     Active Substance: RUFINAMIDE
     Indication: Generalised tonic-clonic seizure
     Route: 048
     Dates: start: 20240312, end: 20240316
  2. BANZEL [Suspect]
     Active Substance: RUFINAMIDE
     Route: 048
     Dates: start: 20240317, end: 20240321
  3. BANZEL [Suspect]
     Active Substance: RUFINAMIDE
     Dosage: 100MG AM AND 200MG PM
     Route: 048
     Dates: start: 20240322, end: 20240326
  4. BANZEL [Suspect]
     Active Substance: RUFINAMIDE
     Route: 048
     Dates: start: 20240327, end: 20240407
  5. BANZEL [Suspect]
     Active Substance: RUFINAMIDE
     Dosage: 100MG IN THE MORNING AND 50MG IN THE EVENING
     Route: 048
     Dates: start: 20240408

REACTIONS (4)
  - Generalised tonic-clonic seizure [Unknown]
  - Insomnia [Unknown]
  - General physical health deterioration [Unknown]
  - Gait inability [Unknown]

NARRATIVE: CASE EVENT DATE: 20240301
